FAERS Safety Report 7402075-4 (Version None)
Quarter: 2011Q2

REPORT INFORMATION
  Report Type: 
  Country: None (occurrence: None)
  Receive Date: 20110408
  Receipt Date: 20110218
  Transmission Date: 20111010
  Serious: Yes (Other)
  Sender: FDA-Public Use
  Company Number: US-BAYER-201018679NA

PATIENT
  Sex: Male

DRUGS (17)
  1. VANCOMYCIN [Concomitant]
     Dosage: 500 MG, BID
     Route: 042
  2. VASOPRESSIN [Concomitant]
  3. TRASYLOL [Suspect]
     Indication: AORTIC VALVE REPLACEMENT
     Dosage: LOADING DOSE (AMOUNT ILLEGIBLE)
     Route: 042
     Dates: start: 20050924, end: 20050924
  4. METOPROLOL [Concomitant]
     Dosage: 5 MG, QID
     Route: 042
  5. PANTOPRAZOLE [Concomitant]
  6. HALDOL [Concomitant]
  7. EPINEPHRINE [Concomitant]
     Dosage: UNK
     Dates: start: 20050924
  8. DOPAMINE [Concomitant]
     Dosage: DRIP
     Route: 041
  9. INSULIN [Concomitant]
     Dosage: SLIDING SCALE
  10. THIAMINE [Concomitant]
  11. OXYCODONE HCL [Concomitant]
  12. TOBRAMYCIN [Concomitant]
     Dosage: 40 MG, TID
     Route: 042
  13. PROPOFOL [Concomitant]
     Route: 042
  14. TRASYLOL [Suspect]
     Indication: AORTIC SURGERY
  15. CEFAZOLIN [Concomitant]
     Dosage: 2 G, TID
     Route: 042
  16. POTASSIUM CHLORIDE [Concomitant]
     Dosage: 40 MEQ, PRN
  17. PERIDEX [Concomitant]

REACTIONS (9)
  - RENAL INJURY [None]
  - ANXIETY [None]
  - PAIN [None]
  - RENAL FAILURE [None]
  - FEAR [None]
  - STRESS [None]
  - UNEVALUABLE EVENT [None]
  - EMOTIONAL DISORDER [None]
  - RENAL IMPAIRMENT [None]
